FAERS Safety Report 17416546 (Version 1)
Quarter: 2020Q1

REPORT INFORMATION
  Report Type: Spontaneous
  Country: US (occurrence: US)
  Receive Date: 20200213
  Receipt Date: 20200213
  Transmission Date: 20200409
  Serious: Yes (Disabling)
  Sender: FDA-Public Use
  Company Number: None

PATIENT
  Age: 57 Year
  Weight: 77.4 kg

DRUGS (11)
  1. AMBIEN [Concomitant]
     Active Substance: ZOLPIDEM TARTRATE
  2. PROMETHEZINE [Concomitant]
  3. CALCIUM + D [Concomitant]
     Active Substance: CALCIUM\VITAMIN D
  4. EXCEDRIN EXTRA STRENGTH [Concomitant]
     Active Substance: ACETAMINOPHEN\ASPIRIN\CAFFEINE
  5. EMGALITY [Suspect]
     Active Substance: GALCANEZUMAB-GNLM
     Indication: MIGRAINE
     Dosage: ?          QUANTITY:2 INJECTION(S);?
     Route: 058
     Dates: start: 20200112, end: 20200112
  6. NEXIUM [Concomitant]
     Active Substance: ESOMEPRAZOLE MAGNESIUM
  7. PAXIL [Concomitant]
     Active Substance: PAROXETINE HYDROCHLORIDE
  8. MULTIVITAMIN [Concomitant]
     Active Substance: VITAMINS
  9. FLONASE [Concomitant]
     Active Substance: FLUTICASONE PROPIONATE
  10. DOCUSATE SODIUM. [Concomitant]
     Active Substance: DOCUSATE SODIUM
  11. ZYRTEC [Concomitant]
     Active Substance: CETIRIZINE HYDROCHLORIDE

REACTIONS (9)
  - Dizziness [None]
  - Acral peeling skin syndrome [None]
  - Nausea [None]
  - Hot flush [None]
  - Dry skin [None]
  - Pain [None]
  - Constipation [None]
  - Arthralgia [None]
  - Haemorrhage [None]

NARRATIVE: CASE EVENT DATE: 20200213
